FAERS Safety Report 4696737-X (Version None)
Quarter: 2005Q2

REPORT INFORMATION
  Report Type: 
  Country: None (occurrence: None)
  Receive Date: 20050622
  Receipt Date: 20050608
  Transmission Date: 20051028
  Serious: Yes (Hospitalization, Other)
  Sender: FDA-Public Use
  Company Number: DE-KINGPHARMUSA00001-K200500799

PATIENT
  Age: 40 Year
  Sex: Male

DRUGS (2)
  1. EPINEPHRINE [Suspect]
     Indication: RESUSCITATION
     Dosage: 1 MG, UNK
  2. SODIUM BICARBONATE [Suspect]
     Indication: RESUSCITATION
     Dosage: 200 ML, UNK

REACTIONS (3)
  - EXTRAVASATION [None]
  - INFECTION [None]
  - NECROSIS [None]
